FAERS Safety Report 4360623-5 (Version None)
Quarter: 2004Q2

REPORT INFORMATION
  Report Type: 
  Country: None (occurrence: None)
  Receive Date: 20040519
  Receipt Date: 20040513
  Transmission Date: 20050107
  Serious: Yes (Death)
  Sender: FDA-Public Use
  Company Number: LB-MERCK-0405USA00920

PATIENT
  Age: 13 Year
  Sex: Male

DRUGS (3)
  1. ANTINEOPLASTIC (UNSPECIFIED) [Suspect]
     Indication: ACUTE LYMPHOCYTIC LEUKAEMIA
     Route: 065
  2. CANCIDAS [Suspect]
     Indication: ASPERGILLOSIS
     Route: 042
     Dates: start: 20040224, end: 20040402
  3. PREDNISONE [Concomitant]
     Indication: ACUTE LYMPHOCYTIC LEUKAEMIA
     Route: 065

REACTIONS (3)
  - ACUTE LYMPHOCYTIC LEUKAEMIA [None]
  - NEUTROPENIA [None]
  - THERAPY NON-RESPONDER [None]
